FAERS Safety Report 8493043-2 (Version None)
Quarter: 2012Q3

REPORT INFORMATION
  Report Type: 
  Country: None (occurrence: None)
  Receive Date: 20120706
  Receipt Date: 20120627
  Transmission Date: 20120928
  Serious: Yes (Hospitalization)
  Sender: FDA-Public Use
  Company Number: JP-VERTEX PHARMACEUTICALS INC.-AE-2012-009159

PATIENT
  Age: 65 Year
  Sex: Male

DRUGS (17)
  1. MUCOSTA [Concomitant]
     Route: 048
  2. SM [Concomitant]
     Route: 048
  3. OMEPRAZOLE [Concomitant]
     Route: 048
     Dates: start: 20120304
  4. FLOMOX [Concomitant]
     Route: 048
     Dates: start: 20120307, end: 20120309
  5. PREDNISOLONE [Concomitant]
     Route: 048
     Dates: start: 20120418, end: 20120516
  6. RABEPRAZOLE SODIUM [Concomitant]
     Route: 048
     Dates: start: 20120418
  7. EPINASTINE HYDROCHLORIDE [Concomitant]
     Route: 048
  8. TELAVIC (TELAPREVIR) [Suspect]
     Route: 048
     Dates: start: 20120307, end: 20120410
  9. CEFAZOLIN SODIUM [Concomitant]
     Route: 048
  10. GASMOTIN [Concomitant]
     Route: 048
     Dates: start: 20120305, end: 20120307
  11. RIBAVIRIN [Concomitant]
     Route: 048
     Dates: start: 20120306
  12. PEGINTERFERON ALFA-2B [Concomitant]
     Indication: HEPATITIS C
     Route: 058
     Dates: start: 20120301, end: 20120328
  13. TELAVIC (TELAPREVIR) [Suspect]
     Route: 048
     Dates: start: 20120411, end: 20120418
  14. PRIMPERAN TAB [Concomitant]
     Route: 048
     Dates: start: 20120306
  15. TELAVIC (TELAPREVIR) [Suspect]
     Indication: HEPATITIS C
     Route: 048
     Dates: start: 20120301, end: 20120306
  16. RIBAVIRIN [Concomitant]
     Indication: HEPATITIS C
     Route: 048
     Dates: start: 20120301, end: 20120305
  17. PEGINTERFERON ALFA-2B [Concomitant]
     Route: 058
     Dates: start: 20120403

REACTIONS (1)
  - TOXIC SKIN ERUPTION [None]
